FAERS Safety Report 18532664 (Version 7)
Quarter: 2021Q2

REPORT INFORMATION
  Report Type: Spontaneous
  Country: US (occurrence: US)
  Receive Date: 20201123
  Receipt Date: 20210423
  Transmission Date: 20210717
  Serious: Yes (Hospitalization, Other)
  Sender: FDA-Public Use
  Company Number: US-GLAXOSMITHKLINE-US2020AMR228091

PATIENT
  Sex: Female

DRUGS (7)
  1. AVASTIN [Suspect]
     Active Substance: BEVACIZUMAB
     Indication: BLOOD PRESSURE ABNORMAL
     Dosage: UNK
     Dates: end: 202103
  2. ZEJULA [Suspect]
     Active Substance: NIRAPARIB
     Dosage: 100 MG, QD
     Route: 048
  3. MAG 07 (MAGNESIUM + POTASSIUM) [Concomitant]
     Indication: PRODUCT USED FOR UNKNOWN INDICATION
     Dosage: UNK
  4. ZEJULA [Suspect]
     Active Substance: NIRAPARIB
     Dosage: 100 MG, QD
     Route: 048
  5. ZEJULA [Suspect]
     Active Substance: NIRAPARIB
     Dosage: 100 MG, QD
  6. ZEJULA [Suspect]
     Active Substance: NIRAPARIB
     Indication: OVARIAN CANCER
     Dosage: 200 MG, QD
     Route: 048
     Dates: start: 20201103
  7. ZEJULA [Suspect]
     Active Substance: NIRAPARIB
     Dosage: 100 MG, QD
     Route: 048

REACTIONS (19)
  - Transient ischaemic attack [Unknown]
  - Blood pressure systolic increased [Recovering/Resolving]
  - Feeling abnormal [Unknown]
  - Blood urine present [Unknown]
  - Headache [Unknown]
  - Blood pressure abnormal [Unknown]
  - Liver function test abnormal [Unknown]
  - Blood pressure increased [Recovering/Resolving]
  - Small intestinal obstruction [Unknown]
  - Pain in extremity [Unknown]
  - Epistaxis [Unknown]
  - Trigger finger [Unknown]
  - Conjunctivitis [Unknown]
  - Carbohydrate antigen 125 increased [Unknown]
  - Abdominal pain [Unknown]
  - Visual impairment [Unknown]
  - Pyrexia [Unknown]
  - Myalgia [Unknown]
  - Haemoglobin decreased [Unknown]
